FAERS Safety Report 25247002 (Version 6)
Quarter: 2025Q2

REPORT INFORMATION
  Report Type: Report from Study
  Country: IT (occurrence: IT)
  Receive Date: 20250428
  Receipt Date: 20250529
  Transmission Date: 20250717
  Serious: Yes (Hospitalization)
  Sender: PFIZER
  Company Number: IT-PFIZER INC-PV202500046243

PATIENT
  Age: 7 Year
  Sex: Female
  Weight: 28 kg

DRUGS (26)
  1. VINCRISTINE SULFATE [Suspect]
     Active Substance: VINCRISTINE SULFATE
     Indication: Leukaemia
     Dosage: 1.5 MG, 1/DAY
     Route: 042
     Dates: start: 20250214, end: 20250214
  2. VINCRISTINE SULFATE [Suspect]
     Active Substance: VINCRISTINE SULFATE
     Dosage: 1.5 MG, 1/DAY
     Route: 042
     Dates: start: 20250221, end: 20250221
  3. VINCRISTINE SULFATE [Suspect]
     Active Substance: VINCRISTINE SULFATE
     Dosage: 1.44 MG, 1/DAY
     Route: 042
     Dates: start: 20250307, end: 20250307
  4. VINCRISTINE SULFATE [Suspect]
     Active Substance: VINCRISTINE SULFATE
     Dosage: 1.44 MG, 1/DAY
     Route: 042
     Dates: start: 20250314, end: 20250314
  5. DEXAMETHASONE SODIUM PHOSPHATE [Suspect]
     Active Substance: DEXAMETHASONE SODIUM PHOSPHATE
     Indication: Leukaemia
     Dosage: 20 MG, DAILY
     Route: 042
     Dates: start: 20250212, end: 20250216
  6. DEXAMETHASONE SODIUM PHOSPHATE [Suspect]
     Active Substance: DEXAMETHASONE SODIUM PHOSPHATE
     Dosage: 19 MG, DAILY
     Route: 042
     Dates: start: 20250305, end: 20250309
  7. MITOXANTRONE HYDROCHLORIDE [Suspect]
     Active Substance: MITOXANTRONE HYDROCHLORIDE
     Indication: Leukaemia
     Dosage: 10 MG, 1/DAY
     Route: 042
     Dates: start: 20250212, end: 20250213
  8. PEGASPARGASE [Suspect]
     Active Substance: PEGASPARGASE
     Indication: Leukaemia
     Dosage: 1020 IU, 1X/DAY
     Route: 042
     Dates: start: 20250214, end: 20250214
  9. PEGASPARGASE [Suspect]
     Active Substance: PEGASPARGASE
     Dosage: 960 IU, 1/DAY
     Route: 042
     Dates: start: 20250307, end: 20250307
  10. METHOTREXATE [Suspect]
     Active Substance: METHOTREXATE
     Indication: Leukaemia
     Dosage: 12 MG, 1/DAY, TEVA
     Route: 037
     Dates: start: 20250210, end: 20250210
  11. METHOTREXATE [Suspect]
     Active Substance: METHOTREXATE
     Dosage: 12 MG, 1/DAY, TEVA
     Route: 037
     Dates: start: 20250219, end: 20250219
  12. METHOTREXATE [Suspect]
     Active Substance: METHOTREXATE
     Dosage: 12 MG, 1/DAY, TEVA
     Route: 037
     Dates: start: 20250318, end: 20250318
  13. VINCRISTINE SULFATE [Suspect]
     Active Substance: VINCRISTINE SULFATE
     Indication: Leukaemia
     Dosage: 1.46 MG, 1/DAY
     Route: 042
     Dates: start: 20250402, end: 20250402
  14. VINCRISTINE SULFATE [Suspect]
     Active Substance: VINCRISTINE SULFATE
     Dosage: 1.46 MG, 1/DAY
     Route: 042
     Dates: start: 20250407, end: 20250407
  15. CYTARABINE [Suspect]
     Active Substance: CYTARABINE
     Indication: Leukaemia
     Dosage: 30 MG, 1/DAY
     Route: 037
     Dates: start: 20250402, end: 20250402
  16. CYTARABINE [Suspect]
     Active Substance: CYTARABINE
     Dosage: 1940 MG, 2/DAY
     Route: 042
     Dates: start: 20250406, end: 20250406
  17. CYCLOPHOSPHAMIDE [Suspect]
     Active Substance: CYCLOPHOSPHAMIDE
     Indication: Leukaemia
     Dosage: 195 MG, 2/DAY
     Route: 042
     Dates: start: 20250403, end: 20250405
  18. METHOTREXATE [Suspect]
     Active Substance: METHOTREXATE
     Indication: Leukaemia
     Dosage: 12 MG, 1/DAY, TEVA
     Route: 037
     Dates: start: 20250402, end: 20250402
  19. METHOTREXATE [Suspect]
     Active Substance: METHOTREXATE
     Dosage: 970 MG, 1/DAY, TEVA
     Route: 042
     Dates: start: 20250402, end: 20250403
  20. DEXAMETHASONE [Concomitant]
     Active Substance: DEXAMETHASONE
     Indication: Leukaemia
     Dosage: 5 MG, 2/DAY
     Route: 042
     Dates: start: 20250402, end: 20250407
  21. PREDNISONE [Concomitant]
     Active Substance: PREDNISONE
     Indication: Leukaemia
     Dosage: 10 MG, 1/DAY
     Route: 037
     Dates: start: 20250402, end: 20250402
  22. PEGASPARGASE [Concomitant]
     Active Substance: PEGASPARGASE
     Indication: Leukaemia
     Dosage: 975 IU, 1/DAY
     Route: 042
     Dates: start: 20250407, end: 20250407
  23. ONDANSETRON [Concomitant]
     Active Substance: ONDANSETRON
     Indication: Prophylaxis of nausea and vomiting
     Dosage: 5 MG, 3/DAY
     Route: 042
     Dates: start: 20250402, end: 20250407
  24. FAMOTIDINE [Concomitant]
     Active Substance: FAMOTIDINE
     Indication: Gastritis prophylaxis
     Dosage: 20 MG, 1/DAY
     Route: 048
     Dates: start: 20250402, end: 20250407
  25. MESNA [Concomitant]
     Active Substance: MESNA
     Indication: Prophylaxis
     Dosage: 70 MG, 3/DAY, UROMITEXANE
     Dates: start: 20250403, end: 20250405
  26. CIPROFLOXACIN [Concomitant]
     Active Substance: CIPROFLOXACIN
     Indication: Antibiotic prophylaxis
     Dosage: 250 MG, 2/DAY
     Dates: start: 20250410, end: 20250416

REACTIONS (1)
  - Febrile neutropenia [Recovered/Resolved]

NARRATIVE: CASE EVENT DATE: 20250416
